FAERS Safety Report 5140990-5 (Version None)
Quarter: 2006Q4

REPORT INFORMATION
  Report Type: 
  Country: None (occurrence: None)
  Receive Date: 20061025
  Receipt Date: 20061019
  Transmission Date: 20070319
  Serious: Yes (Other)
  Sender: FDA-Public Use
  Company Number: 2006S1000258

PATIENT
  Age: 50 Year
  Sex: Female
  Weight: 40.8237 kg

DRUGS (1)
  1. CLOBETASOL PROPIONATE [Suspect]
     Indication: ALOPECIA
     Dosage: 0.05 PCT;BID;TOP
     Route: 061
     Dates: start: 20060801

REACTIONS (1)
  - INTRAOCULAR PRESSURE INCREASED [None]
